FAERS Safety Report 8991884 (Version 1)
Quarter: 2012Q4

REPORT INFORMATION
  Report Type: Report from Study
  Country: CN (occurrence: CN)
  Receive Date: 20121231
  Receipt Date: 20121231
  Transmission Date: 20130627
  Serious: Yes (Other)
  Sender: FDA-Public Use
  Company Number: CN-ROCHE-1174229

PATIENT
  Age: 71 Year
  Sex: Female

DRUGS (4)
  1. CAPECITABINE [Suspect]
     Indication: COLON CANCER
     Route: 048
  2. BEVACIZUMAB [Suspect]
     Indication: COLON CANCER METASTATIC
     Route: 065
     Dates: start: 20101001
  3. 5-FLUOROURACIL [Concomitant]
     Indication: COLON CANCER METASTATIC
     Route: 065
     Dates: start: 20101001
  4. CALCIUM FOLINATE [Concomitant]
     Indication: COLON CANCER METASTATIC
     Route: 065
     Dates: start: 20101001

REACTIONS (2)
  - Liver injury [Unknown]
  - Metastatic neoplasm [Recovering/Resolving]
